FAERS Safety Report 21554430 (Version 3)
Quarter: 2023Q1

REPORT INFORMATION
  Report Type: Spontaneous
  Country: JP (occurrence: JP)
  Receive Date: 20221104
  Receipt Date: 20230102
  Transmission Date: 20230418
  Serious: Yes (Hospitalization, Other)
  Sender: FDA-Public Use
  Company Number: JP-Accord-284434

PATIENT
  Age: 43 Year
  Sex: Male
  Weight: 86 kg

DRUGS (7)
  1. OXALIPLATIN [Suspect]
     Active Substance: OXALIPLATIN
     Indication: Rectal cancer metastatic
     Dosage: 250 MG (130 MG/M2 ON DAY 1, EVERY 3 WEEKS)
  2. CAPECITABINE [Concomitant]
     Active Substance: CAPECITABINE
     Indication: Rectal cancer metastatic
     Dosage: 2000 MG/M2 ON DAYS 1-14, EVERY 3 WEEKS
     Route: 048
  3. BEVACIZUMAB [Concomitant]
     Active Substance: BEVACIZUMAB
     Indication: Rectal cancer metastatic
     Dosage: 7.5 MG/KG ON DAY 1, EVERY 3 WEEKS
  4. FLUOROURACIL [Concomitant]
     Active Substance: FLUOROURACIL
     Indication: Rectal cancer metastatic
  5. LEUCOVORIN CALCIUM [Concomitant]
     Active Substance: LEUCOVORIN CALCIUM
     Indication: Rectal cancer metastatic
     Dosage: RECEIVED 2 CYCLES
  6. IRINOTECAN [Concomitant]
     Active Substance: IRINOTECAN
     Indication: Rectal cancer metastatic
  7. AFLIBERCEPT [Concomitant]
     Active Substance: AFLIBERCEPT
     Indication: Rectal cancer metastatic

REACTIONS (8)
  - Portal hypertension [Recovered/Resolved]
  - Neuropathy peripheral [Recovered/Resolved]
  - Stoma site haemorrhage [Recovered/Resolved]
  - Splenomegaly [Recovered/Resolved]
  - Stomal varices [Recovered/Resolved]
  - Condition aggravated [Recovered/Resolved]
  - Thrombocytopenia [Recovered/Resolved]
  - Venoocclusive liver disease [Recovered/Resolved]
